FAERS Safety Report 26189313 (Version 1)
Quarter: 2025Q4

REPORT INFORMATION
  Report Type: Spontaneous
  Country: CN (occurrence: CN)
  Receive Date: 20251223
  Receipt Date: 20251223
  Transmission Date: 20260118
  Serious: Yes (Other)
  Sender: BEIGENE
  Company Number: CN-BEONEMEDICINES-BGN-2025-022707

PATIENT
  Age: 70 Year
  Sex: Female
  Weight: 64 kg

DRUGS (12)
  1. TISLELIZUMAB [Suspect]
     Active Substance: TISLELIZUMAB
     Indication: Neoplasm malignant
     Dosage: 200 MILLIGRAM
     Dates: start: 20251023, end: 20251023
  2. TISLELIZUMAB [Suspect]
     Active Substance: TISLELIZUMAB
     Dosage: 200 MILLIGRAM
     Route: 041
     Dates: start: 20251023, end: 20251023
  3. TISLELIZUMAB [Suspect]
     Active Substance: TISLELIZUMAB
     Dosage: 200 MILLIGRAM
     Route: 041
     Dates: start: 20251023, end: 20251023
  4. TISLELIZUMAB [Suspect]
     Active Substance: TISLELIZUMAB
     Dosage: 200 MILLIGRAM
     Dates: start: 20251023, end: 20251023
  5. OXALIPLATIN [Suspect]
     Active Substance: OXALIPLATIN
     Indication: Neoplasm malignant
     Dosage: 200 MILLIGRAM
     Dates: start: 20251023, end: 20251023
  6. OXALIPLATIN [Suspect]
     Active Substance: OXALIPLATIN
     Dosage: 200 MILLIGRAM
     Route: 041
     Dates: start: 20251023, end: 20251023
  7. OXALIPLATIN [Suspect]
     Active Substance: OXALIPLATIN
     Dosage: 200 MILLIGRAM
     Route: 041
     Dates: start: 20251023, end: 20251023
  8. OXALIPLATIN [Suspect]
     Active Substance: OXALIPLATIN
     Dosage: 200 MILLIGRAM
     Dates: start: 20251023, end: 20251023
  9. GIMERACIL\OTERACIL\TEGAFUR [Suspect]
     Active Substance: GIMERACIL\OTERACIL POTASSIUM\TEGAFUR
     Indication: Neoplasm malignant
     Dosage: 3 DOSAGE FORM, BID
     Route: 061
     Dates: start: 20251023, end: 20251023
  10. GIMERACIL\OTERACIL\TEGAFUR [Suspect]
     Active Substance: GIMERACIL\OTERACIL POTASSIUM\TEGAFUR
     Dosage: 3 DOSAGE FORM, BID
     Route: 048
     Dates: start: 20251023, end: 20251023
  11. GIMERACIL\OTERACIL\TEGAFUR [Suspect]
     Active Substance: GIMERACIL\OTERACIL POTASSIUM\TEGAFUR
     Dosage: 3 DOSAGE FORM, BID
     Route: 048
     Dates: start: 20251023, end: 20251023
  12. GIMERACIL\OTERACIL\TEGAFUR [Suspect]
     Active Substance: GIMERACIL\OTERACIL POTASSIUM\TEGAFUR
     Dosage: 3 DOSAGE FORM, BID
     Route: 061
     Dates: start: 20251023, end: 20251023

REACTIONS (2)
  - Myelosuppression [Recovering/Resolving]
  - Platelet count decreased [Recovering/Resolving]

NARRATIVE: CASE EVENT DATE: 20251120
